FAERS Safety Report 4594007-1 (Version None)
Quarter: 2005Q1

REPORT INFORMATION
  Report Type: 
  Country: None (occurrence: None)
  Receive Date: 20050218
  Receipt Date: 20050209
  Transmission Date: 20050727
  Serious: Yes (Other)
  Sender: FDA-Public Use
  Company Number: 2005028494

PATIENT
  Sex: Male

DRUGS (1)
  1. CELEBREX [Suspect]
     Indication: ILL-DEFINED DISORDER
     Dosage: (200 MG), AS NECESSARY, ORAL
     Route: 048

REACTIONS (5)
  - CORONARY ARTERY SURGERY [None]
  - DIALYSIS [None]
  - HERNIA REPAIR [None]
  - PROSTATIC OPERATION [None]
  - RENAL FAILURE CHRONIC [None]
